FAERS Safety Report 21804740 (Version 1)
Quarter: 2023Q1

REPORT INFORMATION
  Report Type: Report from Study
  Country: US (occurrence: US)
  Receive Date: 20230102
  Receipt Date: 20230102
  Transmission Date: 20230417
  Serious: No
  Sender: FDA-Public Use
  Company Number: US-ABBVIE-4222693

PATIENT
  Sex: Female

DRUGS (1)
  1. HUMIRA [Suspect]
     Active Substance: ADALIMUMAB
     Indication: Colitis ulcerative
     Route: 058

REACTIONS (5)
  - Stress [Recovering/Resolving]
  - Abdominal pain [Recovering/Resolving]
  - Food poisoning [Recovered/Resolved]
  - Nasopharyngitis [Recovered/Resolved]
  - Eczema [Recovering/Resolving]
